FAERS Safety Report 21396703 (Version 1)
Quarter: 2022Q3

REPORT INFORMATION
  Report Type: Spontaneous
  Country: US (occurrence: None)
  Receive Date: 20220930
  Receipt Date: 20220930
  Transmission Date: 20221027
  Serious: No
  Sender: FDA-Public Use
  Company Number: US-Spark Therapeutics, Inc.-US-SPK-21-00072

PATIENT
  Age: 18 Year
  Sex: Male
  Weight: 65 kg

DRUGS (28)
  1. LUXTURNA [Suspect]
     Active Substance: VORETIGENE NEPARVOVEC-RZYL
     Indication: Leber^s congenital amaurosis
     Dates: start: 20210707, end: 20210707
  2. LUXTURNA [Suspect]
     Active Substance: VORETIGENE NEPARVOVEC-RZYL
     Dates: start: 20210721, end: 20210721
  3. LUXTURNA [Suspect]
     Active Substance: VORETIGENE NEPARVOVEC-RZYL
     Indication: Leber^s congenital amaurosis
     Dates: start: 20210707, end: 20210707
  4. LUXTURNA [Suspect]
     Active Substance: VORETIGENE NEPARVOVEC-RZYL
     Dates: start: 20210721, end: 20210721
  5. CORTICOSTEROID NOS [Suspect]
     Active Substance: CORTICOSTEROID NOS
     Indication: Product used for unknown indication
  6. VIGAMOX [Concomitant]
     Active Substance: MOXIFLOXACIN HYDROCHLORIDE
     Indication: Product used for unknown indication
     Route: 031
  7. VIGAMOX [Concomitant]
     Active Substance: MOXIFLOXACIN HYDROCHLORIDE
     Dosage: 1 DROP TO THE RIGHT EYE
     Dates: start: 20210707, end: 20210707
  8. PRED FORTE [Concomitant]
     Active Substance: PREDNISOLONE ACETATE
     Indication: Product used for unknown indication
  9. PRED FORTE [Concomitant]
     Active Substance: PREDNISOLONE ACETATE
  10. PRED FORTE [Concomitant]
     Active Substance: PREDNISOLONE ACETATE
     Dosage: 1 DROP TO THE RIGHT EYE
     Dates: start: 20210707, end: 20210707
  11. ATROPINE [Concomitant]
     Active Substance: ATROPINE
     Indication: Product used for unknown indication
  12. ATROPINE [Concomitant]
     Active Substance: ATROPINE
  13. DELTASONE [Concomitant]
     Active Substance: PREDNISONE
     Indication: Product used for unknown indication
     Dosage: ONE REFILL - 95 TABLETS, TO START 3 DAYS PRIOR TO SURGERY
     Route: 048
     Dates: start: 20210609
  14. COSOPT [Concomitant]
     Active Substance: DORZOLAMIDE HYDROCHLORIDE\TIMOLOL MALEATE
     Indication: Product used for unknown indication
     Dosage: 22.3-6.8 MG/ML PUT 1 DROP IN THE RIGHT EYE 2 TIMES A DAY
     Dates: end: 20210825
  15. COSOPT [Concomitant]
     Active Substance: DORZOLAMIDE HYDROCHLORIDE\TIMOLOL MALEATE
     Dosage: 22.3-6.8 MG/ML, PUT 1 DROP IN BOTH EYES 2 TIMES A DAY
     Dates: start: 20210825
  16. ISOPTO ATROPINE [Concomitant]
     Active Substance: ATROPINE SULFATE
     Indication: Product used for unknown indication
     Dosage: 1 DROP TO THE RIGHT EYE
     Dates: start: 20210707, end: 20210707
  17. TETRACAINE HYDROCHLORIDE [Concomitant]
     Active Substance: TETRACAINE HYDROCHLORIDE
     Indication: Product used for unknown indication
     Dosage: 1 DROP ADMINISTERED IN THE RIGHT EYE FOR EMERGENCY USE AUTHORIZATION (EUA) PRIOR TO REFRACTION DROPS
     Dates: start: 20210707, end: 20210707
  18. COMBO EYE DROPS [Concomitant]
     Indication: Product used for unknown indication
     Dosage: 1 DROP TO RIGHT EYE FOR EUA EVERY 10 MINUTES THREE TIMES BEFORE SURGERY
     Dates: start: 20210707, end: 20210707
  19. OFIRMEV [Concomitant]
     Active Substance: ACETAMINOPHEN
     Indication: Product used for unknown indication
     Dosage: 10 MG/ML INTERMITTENT INTRAVENOUS INFUSION AT 1000 MG (15 MG/KGX65 KG) MAXIMUM OF FOUR DOSES PER DAY
     Route: 042
     Dates: start: 20210707, end: 20210707
  20. BALANCED SALT SOLUTION [Concomitant]
     Active Substance: CALCIUM CHLORIDE\MAGNESIUM CHLORIDE\POTASSIUM CHLORIDE\SODIUM ACETATE\SODIUM CHLORIDE\SODIUM CITRATE
     Indication: Eye irrigation
     Dosage: TWO BOTTLES, AT LEAST TWO 15 ML VIALS
     Dates: start: 20210707, end: 20210707
  21. MARCAINE [Concomitant]
     Active Substance: BUPIVACAINE HYDROCHLORIDE
     Indication: Product used for unknown indication
     Dates: start: 20210707, end: 20210707
  22. ANCEF [Concomitant]
     Active Substance: CEFAZOLIN SODIUM
     Indication: Product used for unknown indication
     Dosage: 100 MG/0.5 ML IN SUBCONJUNCTIVAL INJECTION, PRESERVATIVE FREE SALINE
     Dates: start: 20210707, end: 20210707
  23. ADRENALIN [Concomitant]
     Active Substance: EPINEPHRINE
     Indication: Product used for unknown indication
     Dosage: IN BALANCED SALT SOLUTION PLUS AT 500 ML
     Dates: start: 20210707, end: 20210707
  24. DECADRON [Concomitant]
     Active Substance: DEXAMETHASONE
     Indication: Product used for unknown indication
     Dosage: IN BALANCED SALT SOLUTION PLUS AT 500 ML
     Dates: start: 20210707, end: 20210707
  25. MAXITROL [Concomitant]
     Active Substance: DEXAMETHASONE\NEOMYCIN SULFATE\POLYMYXIN B SULFATE
     Indication: Product used for unknown indication
     Dosage: OPHTHALMIC OINTMENT APPLIED TO THE THIN RIBBON TO THE RIGHT EYE
     Dates: start: 20210707, end: 20210707
  26. BETADINE [Concomitant]
     Active Substance: POVIDONE-IODINE
     Indication: Product used for unknown indication
     Dosage: ONE BOTTLE OPHTHALMIC SOLUTION TO THE RIGHT EYE
     Dates: start: 20210707, end: 20210707
  27. KENALOG [Concomitant]
     Active Substance: TRIAMCINOLONE ACETONIDE
     Indication: Product used for unknown indication
     Dosage: 0.5 ML SUBCONJUNCTIVAL INJECTION AT 20 MG
     Route: 057
     Dates: start: 20210707, end: 20210707
  28. TRIESENCE [Concomitant]
     Active Substance: TRIAMCINOLONE ACETONIDE
     Indication: Product used for unknown indication
     Dosage: 40 MG/ML
     Dates: start: 20210707, end: 20210707

REACTIONS (1)
  - Intraocular pressure increased [Not Recovered/Not Resolved]

NARRATIVE: CASE EVENT DATE: 20210728
